FAERS Safety Report 7470464-8 (Version None)
Quarter: 2011Q2

REPORT INFORMATION
  Report Type: 
  Country: None (occurrence: None)
  Receive Date: 20110510
  Receipt Date: 20110427
  Transmission Date: 20111010
  Serious: Yes (Death, Life-Threatening, Hospitalization)
  Sender: FDA-Public Use
  Company Number: MY-MERCK-1104USA03891

PATIENT
  Age: 45 Year
  Sex: Female

DRUGS (2)
  1. PRIMAXIN [Suspect]
     Indication: SEPSIS
     Route: 065
  2. FLUCONAZOLE [Concomitant]
     Route: 065

REACTIONS (2)
  - MOUTH HAEMORRHAGE [None]
  - STEVENS-JOHNSON SYNDROME [None]
